FAERS Safety Report 5781754-9 (Version None)
Quarter: 2008Q2

REPORT INFORMATION
  Report Type: 
  Country: None (occurrence: None)
  Receive Date: 20080623
  Receipt Date: 20071004
  Transmission Date: 20081010
  Serious: No
  Sender: FDA-Public Use
  Company Number: US-ASTRAZENECA-2007UW23221

PATIENT
  Sex: Female

DRUGS (2)
  1. RHINOCORT [Suspect]
     Indication: HYPERSENSITIVITY
     Route: 045
     Dates: start: 20020101, end: 20070701
  2. RHINOCORT [Suspect]
     Indication: SINUSITIS
     Route: 045
     Dates: start: 20020101, end: 20070701

REACTIONS (2)
  - EPISTAXIS [None]
  - WITHDRAWAL SYNDROME [None]
